FAERS Safety Report 5572446-X (Version None)
Quarter: 2007Q4

REPORT INFORMATION
  Report Type: 
  Country: None (occurrence: None)
  Receive Date: 20071222
  Receipt Date: 20071215
  Transmission Date: 20080405
  Serious: Yes (Other)
  Sender: FDA-Public Use
  Company Number: US-PFIZER INC-2007106046

PATIENT
  Age: 20 Year
  Sex: Female

DRUGS (2)
  1. DEPO-PROVERA SUSPENSION/INJ [Suspect]
     Indication: CONTRACEPTION
     Dosage: DAILY DOSE:150MG-FREQ:1ST CYCLE
  2. DEPO-PROVERA SUSPENSION/INJ [Suspect]
     Dosage: DAILY DOSE:150MG-FREQ:2ND CYCLE

REACTIONS (1)
  - NEPHROLITHIASIS [None]
